FAERS Safety Report 5275773-9 (Version None)
Quarter: 2007Q1

REPORT INFORMATION
  Report Type: 
  Country: None (occurrence: None)
  Receive Date: 20070326
  Receipt Date: 20070322
  Transmission Date: 20070707
  Serious: Yes (Hospitalization)
  Sender: FDA-Public Use
  Company Number: FR-GLAXOSMITHKLINE-B0460610A

PATIENT
  Age: 60 Year
  Sex: Female

DRUGS (5)
  1. CLAVENTIN [Suspect]
     Indication: LUNG ABSCESS
     Dosage: 1G THREE TIMES PER DAY
     Route: 042
     Dates: start: 20061218, end: 20061231
  2. TILDIEM [Suspect]
     Dosage: 60MG PER DAY
     Route: 048
     Dates: start: 20061204, end: 20070108
  3. FLAGYL [Concomitant]
     Indication: LUNG ABSCESS
     Dosage: 500MG THREE TIMES PER DAY
     Route: 042
     Dates: start: 20061204, end: 20061213
  4. ROCEPHIN [Concomitant]
     Indication: LUNG ABSCESS
     Dosage: 2G PER DAY
     Route: 042
     Dates: start: 20061204, end: 20061218
  5. NOVOMIX [Concomitant]
     Route: 058
     Dates: start: 20061220

REACTIONS (5)
  - FACE OEDEMA [None]
  - PERIVASCULAR DERMATITIS [None]
  - RASH MACULO-PAPULAR [None]
  - SKIN BURNING SENSATION [None]
  - SKIN EXFOLIATION [None]
